APPROVED DRUG PRODUCT: ALPHADERM
Active Ingredient: HYDROCORTISONE; UREA
Strength: 1%;10%
Dosage Form/Route: CREAM;TOPICAL
Application: A086008 | Product #001
Applicant: BIOGLAN LABORATORIES LTD
Approved: Approved Prior to Jan 1, 1982 | RLD: No | RS: No | Type: DISCN